FAERS Safety Report 14730420 (Version 1)
Quarter: 2018Q2

REPORT INFORMATION
  Report Type: Spontaneous
  Country: CH (occurrence: CH)
  Receive Date: 20180406
  Receipt Date: 20180406
  Transmission Date: 20180711
  Serious: Yes (Life-Threatening, Other)
  Sender: FDA-Public Use
  Company Number: CH-BRISTOL-MYERS SQUIBB COMPANY-BMS-2017-095566

PATIENT
  Age: 37 Year
  Sex: Female

DRUGS (13)
  1. TEMESTA EXPIDET [Concomitant]
     Active Substance: LORAZEPAM
     Indication: RESTLESSNESS
     Dosage: 1 MG, UNK
     Route: 048
     Dates: start: 20171012
  2. DUROGESIC [Concomitant]
     Active Substance: FENTANYL
     Indication: PRODUCT USED FOR UNKNOWN INDICATION
     Dosage: 12 ?G, UNK
     Route: 062
     Dates: start: 20171006
  3. HAEMOPRESSIN [Concomitant]
     Indication: HEPATORENAL SYNDROME
     Dosage: 4 MG, QD
     Route: 042
     Dates: start: 20171012
  4. VALVERDE                           /01561605/ [Concomitant]
     Indication: CONSTIPATION
     Dosage: 20 ML, QD
     Route: 048
     Dates: start: 20170922
  5. OXYNORM [Concomitant]
     Active Substance: OXYCODONE HYDROCHLORIDE
     Indication: ANALGESIC THERAPY
     Dosage: 5 MG, QD
     Route: 048
     Dates: start: 20171014
  6. PREGABALIN. [Concomitant]
     Active Substance: PREGABALIN
     Indication: ANALGESIC THERAPY
     Dosage: 25 MG, UNK
     Route: 048
     Dates: start: 20170923
  7. DUROGESIC [Concomitant]
     Active Substance: FENTANYL
     Indication: ANALGESIC THERAPY
     Dosage: 50 ?G, UNK
     Route: 062
     Dates: end: 20171002
  8. OPDIVO [Suspect]
     Active Substance: NIVOLUMAB
     Indication: NASOPHARYNGEAL CANCER
     Dosage: 150 MG, Q2WK
     Route: 041
     Dates: start: 20171004
  9. NOVALGIN                           /00169801/ [Concomitant]
     Active Substance: ACETAMINOPHEN\CAFFEINE\PROPYPHENAZONE
     Indication: ANALGESIC THERAPY
     Route: 048
     Dates: start: 20170919, end: 20171011
  10. EMEND [Concomitant]
     Active Substance: APREPITANT
     Indication: NAUSEA
     Dosage: 125 MG, ONE TIME DOSE
     Route: 048
     Dates: start: 20171009, end: 20171009
  11. EMEND [Concomitant]
     Active Substance: APREPITANT
     Indication: PRODUCT USED FOR UNKNOWN INDICATION
     Dosage: 80 MG, UNK
     Route: 048
     Dates: start: 20171010, end: 20171010
  12. PANTOPRAZOL [Concomitant]
     Active Substance: PANTOPRAZOLE SODIUM
     Indication: PRODUCT USED FOR UNKNOWN INDICATION
     Dosage: 40 MG, QD
     Route: 048
     Dates: start: 20170209
  13. ALBUMIN CSL [Concomitant]
     Active Substance: ALBUMIN HUMAN
     Indication: HEPATORENAL SYNDROME
     Dosage: 200 ML, QD
     Route: 042
     Dates: start: 20171012

REACTIONS (1)
  - Drug-induced liver injury [Not Recovered/Not Resolved]

NARRATIVE: CASE EVENT DATE: 20171009
